FAERS Safety Report 8175492-5 (Version None)
Quarter: 2012Q1

REPORT INFORMATION
  Report Type: 
  Country: None (occurrence: None)
  Receive Date: 20120229
  Receipt Date: 20120221
  Transmission Date: 20120608
  Serious: Yes (Other)
  Sender: FDA-Public Use
  Company Number: US-ASTRAZENECA-2012SE12140

PATIENT
  Age: 60 Year
  Sex: Female
  Weight: 113.4 kg

DRUGS (5)
  1. ATENOLOL [Suspect]
     Indication: HEART RATE IRREGULAR
     Route: 065
  2. DIOVAN [Concomitant]
     Indication: HYPERTENSION
  3. EFFEXOR XR [Suspect]
     Indication: DEPRESSION
     Route: 065
  4. TOVIAZ [Concomitant]
     Indication: BLADDER DISORDER
  5. CELEBREX [Concomitant]
     Indication: ARTHRITIS

REACTIONS (3)
  - DIABETES MELLITUS [None]
  - HEART RATE IRREGULAR [None]
  - DRUG DOSE OMISSION [None]
